FAERS Safety Report 6891941-4 (Version None)
Quarter: 2010Q3

REPORT INFORMATION
  Report Type: 
  Country: None (occurrence: None)
  Receive Date: 20100731
  Receipt Date: 20071129
  Transmission Date: 20110219
  Serious: No
  Sender: FDA-Public Use
  Company Number: US-PFIZER INC-2007101356

PATIENT
  Sex: Male
  Weight: 86.4 kg

DRUGS (8)
  1. NEURONTIN [Suspect]
     Indication: NEUROPATHY PERIPHERAL
     Dates: start: 20060101
  2. HYDROCODONE BITARTRATE [Concomitant]
  3. TMC114 [Concomitant]
  4. NORVIR [Concomitant]
  5. PROTONIX [Concomitant]
  6. PROPRANOLOL [Concomitant]
  7. OPTIVAR [Concomitant]
  8. VIREAD [Concomitant]

REACTIONS (1)
  - BALANCE DISORDER [None]
